FAERS Safety Report 6640290-8 (Version None)
Quarter: 2010Q1

REPORT INFORMATION
  Report Type: 
  Country: None (occurrence: None)
  Receive Date: 20100315
  Receipt Date: 20100226
  Transmission Date: 20100710
  Serious: Yes (Hospitalization)
  Sender: FDA-Public Use
  Company Number: 2010000703

PATIENT
  Age: 61 Year
  Sex: Male

DRUGS (1)
  1. TARCEVA [Suspect]
     Indication: LUNG NEOPLASM MALIGNANT
     Dosage: 150 MG, ORAL
     Route: 048
     Dates: start: 20091127, end: 20100222

REACTIONS (2)
  - INTESTINAL OBSTRUCTION [None]
  - RASH [None]
